FAERS Safety Report 17526410 (Version 3)
Quarter: 2020Q3

REPORT INFORMATION
  Report Type: Report from Study
  Country: US (occurrence: US)
  Receive Date: 20200310
  Receipt Date: 20200821
  Transmission Date: 20201102
  Serious: Yes (Hospitalization, Disabling)
  Sender: FDA-Public Use
  Company Number: US-ACTELION-A-NJ2020-202764

PATIENT
  Age: 75 Year
  Sex: Male

DRUGS (5)
  1. UPTRAVI [Suspect]
     Active Substance: SELEXIPAG
     Dosage: 800 MCG, BID
     Route: 048
  2. UPTRAVI [Suspect]
     Active Substance: SELEXIPAG
     Dosage: 600 MCG, BID
     Route: 048
  3. OXYGEN. [Concomitant]
     Active Substance: OXYGEN
     Dosage: 8?11 L
     Route: 045
  4. UPTRAVI [Suspect]
     Active Substance: SELEXIPAG
     Dosage: UNK
     Route: 048
     Dates: start: 201808
  5. UPTRAVI [Suspect]
     Active Substance: SELEXIPAG
     Indication: PULMONARY ARTERIAL HYPERTENSION
     Dosage: 200 MCG, BID
     Route: 048
     Dates: start: 20181126

REACTIONS (7)
  - Oxygen saturation decreased [Unknown]
  - Disability [Not Recovered/Not Resolved]
  - Frequent bowel movements [Unknown]
  - Headache [Unknown]
  - Dizziness [Unknown]
  - Nausea [Unknown]
  - Fall [Unknown]

NARRATIVE: CASE EVENT DATE: 20200804
